FAERS Safety Report 13564944 (Version 7)
Quarter: 2017Q4

REPORT INFORMATION
  Report Type: Report from Study
  Country: US (occurrence: US)
  Receive Date: 20170519
  Receipt Date: 20171023
  Transmission Date: 20180320
  Serious: Yes (Hospitalization, Other)
  Sender: FDA-Public Use
  Company Number: US-TEVA-769517USA

PATIENT
  Age: 10 Year
  Sex: Male
  Weight: 29.1 kg

DRUGS (7)
  1. CYTARABINE HYDROCHLORIDE 100MG/5ML SDV AND 500MG/10ML SDV [Suspect]
     Active Substance: CYTARABINE HYDROCHLORIDE
     Indication: ACUTE LYMPHOCYTIC LEUKAEMIA
     Dosage: 78 MG (DAYS 1-4, 8-11, 29-32, 36-39)
     Route: 042
     Dates: start: 20170303
  2. CYCLOPHOSPHAMIDE. [Suspect]
     Active Substance: CYCLOPHOSPHAMIDE
     Indication: ACUTE LYMPHOCYTIC LEUKAEMIA
     Dosage: 1050 MG, (D 1 29)
     Route: 042
     Dates: start: 20170303
  3. VINCRISTINE [Suspect]
     Active Substance: VINCRISTINE
     Indication: ACUTE LYMPHOCYTIC LEUKAEMIA
     Dosage: 1.6 MG (DAYS 15. 22, 43)
     Route: 042
     Dates: start: 20170317
  4. INCB018424 [Suspect]
     Active Substance: RUXOLITINIB
     Indication: ACUTE LYMPHOCYTIC LEUKAEMIA
     Dosage: 20 MILLIGRAM DAILY;
     Route: 048
     Dates: start: 20170303
  5. MERCAPTOPURINE. [Suspect]
     Active Substance: MERCAPTOPURINE
     Indication: ACUTE LYMPHOCYTIC LEUKAEMIA
     Dosage: 75 MG, 3/WK AND 50MG 4/WK
     Route: 048
     Dates: start: 20170303
  6. PEGASPARGASE [Suspect]
     Active Substance: PEGASPARGASE
     Indication: ACUTE LYMPHOCYTIC LEUKAEMIA
     Dosage: 2625MG (DAYS15, 43)
     Route: 042
     Dates: start: 20170317
  7. METHOTREXATE. [Suspect]
     Active Substance: METHOTREXATE
     Indication: ACUTE LYMPHOCYTIC LEUKAEMIA
     Dosage: 15MG (DAYS 1,8,15,22)
     Route: 037
     Dates: start: 20170303

REACTIONS (7)
  - Anaemia [Recovered/Resolved]
  - Upper respiratory tract infection [Not Recovered/Not Resolved]
  - Platelet count decreased [Recovered/Resolved]
  - Pancreatitis [Recovered/Resolved]
  - Thrombocytopenia [Recovered/Resolved]
  - Hypertension [Recovered/Resolved]
  - Lung infection [Recovering/Resolving]

NARRATIVE: CASE EVENT DATE: 20170421
